FAERS Safety Report 12437926 (Version 1)
Quarter: 2016Q2

REPORT INFORMATION
  Report Type: Spontaneous
  Country: US (occurrence: US)
  Receive Date: 20160606
  Receipt Date: 20160606
  Transmission Date: 20160815
  Serious: No
  Sender: FDA-Public Use
  Company Number: US-GRANULES INDIA LIMITED-1053323

PATIENT
  Age: 73 Year
  Sex: Male
  Weight: 99.09 kg

DRUGS (2)
  1. METFORMIN HYDROCHLORIDE. [Suspect]
     Active Substance: METFORMIN HYDROCHLORIDE
  2. METFORMIN HYDROCHLORIDE. [Suspect]
     Active Substance: METFORMIN HYDROCHLORIDE
     Route: 048

REACTIONS (1)
  - Muscular weakness [Unknown]
